FAERS Safety Report 8845213 (Version 1)
Quarter: 2012Q4

REPORT INFORMATION
  Report Type: 
  Country: FR (occurrence: FR)
  Receive Date: 20121017
  Receipt Date: 20121017
  Transmission Date: 20130627
  Serious: Yes (Hospitalization)
  Sender: FDA-Public Use
  Company Number: FR-009507513-1210FRA005110

PATIENT
  Age: 53 None
  Sex: Male

DRUGS (10)
  1. COZAAR 100MG, COMPRIM? PELLICUL? [Suspect]
     Indication: HYPERTENSION
     Dosage: 100 mg, qd
     Route: 048
  2. ISOPTINE [Suspect]
     Indication: HYPERTENSION
     Dosage: 120 mg, qd
     Route: 048
     Dates: end: 20120627
  3. TEMERIT [Suspect]
     Dosage: 2.5 mg, qd
     Route: 048
  4. KARDEGIC [Suspect]
     Indication: THROMBOSIS PROPHYLAXIS
     Dosage: 160 mg, qd
     Route: 048
  5. FUROSEMIDE SODIUM\SPIRONOLACTONE [Suspect]
     Indication: HYPERTENSION
     Dosage: 1 DF, qd
     Route: 048
  6. SEROPLEX [Suspect]
     Indication: DEPRESSION
     Dosage: 20 mg, qd
     Route: 048
  7. ATARAX (HYDROXYZINE HYDROCHLORIDE) [Concomitant]
     Route: 048
  8. METFORMIN [Concomitant]
  9. SYMBICORT TURBUHALER [Concomitant]
  10. ALLOPURINOL [Concomitant]

REACTIONS (3)
  - Vertigo [Recovered/Resolved]
  - Balance disorder [Recovered/Resolved]
  - Bradycardia [Recovered/Resolved]
